FAERS Safety Report 8492933 (Version 3)
Quarter: 2012Q4

REPORT INFORMATION
  Report Type: 
  Country: US (occurrence: US)
  Receive Date: 20120404
  Receipt Date: 20120917
  Transmission Date: 20130627
  Serious: Yes (Hospitalization)
  Sender: FDA-Public Use
  Company Number: US-BAYER-2012-029503

PATIENT
  Age: 18 Year
  Sex: Female
  Weight: 61.22 kg

DRUGS (13)
  1. YAZ [Suspect]
     Indication: ACNE
     Dosage: UNK
     Dates: start: 20061122, end: 20090923
  2. YAZ [Suspect]
     Indication: PREMENSTRUAL SYNDROME
  3. YASMIN [Suspect]
     Indication: ACNE
     Dosage: UNK
     Dates: start: 20060818, end: 20061122
  4. YASMIN [Suspect]
     Indication: PREMENSTRUAL SYNDROME
  5. CYCLOBENZAPRINE [Concomitant]
     Dosage: 10 mg, UNK
  6. PANTOPRAZOLE [Concomitant]
     Dosage: UNK
  7. PREVACID [Concomitant]
     Dosage: UNK
  8. ALDARA [Concomitant]
  9. FOLIC ACID [Concomitant]
     Dosage: 1 mg, UNK
  10. PRILOSEC [Concomitant]
  11. VICODIN [Concomitant]
  12. MOTRIN [Concomitant]
  13. ZANTAC [Concomitant]

REACTIONS (6)
  - Cholecystitis [None]
  - Injury [None]
  - Pain [None]
  - Pain [None]
  - Anxiety [None]
  - Fear [None]
